FAERS Safety Report 21994678 (Version 3)
Quarter: 2023Q2

REPORT INFORMATION
  Report Type: Spontaneous
  Country: AR (occurrence: AR)
  Receive Date: 20230215
  Receipt Date: 20230417
  Transmission Date: 20230722
  Serious: Yes (Hospitalization)
  Sender: FDA-Public Use
  Company Number: AR-PFIZER INC-PV202300029195

PATIENT
  Age: 81 Year
  Sex: Female

DRUGS (1)
  1. AROMASIN [Suspect]
     Active Substance: EXEMESTANE
     Indication: Breast cancer metastatic
     Dosage: 25 MG, DAILY
     Dates: start: 20220822

REACTIONS (1)
  - Pneumonia [Unknown]
